FAERS Safety Report 10568060 (Version 1)
Quarter: 2014Q4

REPORT INFORMATION
  Report Type: Spontaneous
  Country: US (occurrence: None)
  Receive Date: 20141024
  Receipt Date: 20141024
  Transmission Date: 20150529
  Serious: Yes (Hospitalization, Other)
  Sender: FDA-Public Use
  Company Number: 2014SGN00736

PATIENT
  Age: 71 Year
  Sex: Female
  Weight: 75.5 kg

DRUGS (18)
  1. VALIUM [Concomitant]
     Active Substance: DIAZEPAM
  2. LYRICA [Concomitant]
     Active Substance: PREGABALIN
  3. OXYCODONE (OXYCODONE) [Concomitant]
     Active Substance: OXYCODONE
  4. ALBUTEROL (SALBUTAMOL SULFATE) [Concomitant]
  5. LEVOTHYROXINE (LEVOTHYROXINE SODIUM) [Concomitant]
  6. ADCETRIS [Suspect]
     Active Substance: BRENTUXIMAB VEDOTIN
     Indication: HODGKIN^S DISEASE
     Route: 042
     Dates: start: 20140403, end: 20140403
  7. METOCLOPRAMIDE (METOCLOPRAMIDE HYDROCHLORIDE) [Concomitant]
  8. ALLOPURINOL (ALLOPURINOL) [Concomitant]
     Active Substance: ALLOPURINOL
  9. TRICOR [Concomitant]
     Active Substance: FENOFIBRATE
  10. POTASSIUM CHLORIDE (POTASSIUM CHLORIDE) [Concomitant]
     Active Substance: POTASSIUM CHLORIDE
  11. HYDROXYZINE (HYDROXYZINE HYDROCHLORIDE) [Concomitant]
  12. OMEPRAZOLE (OMEPRAZOLE) [Concomitant]
     Active Substance: OMEPRAZOLE
  13. FLUTICASONE W/SALMETEROL (FLUTICASONE W/SALMETEROL) [Concomitant]
  14. MEPROBAMATE (MEPROBAMATE) [Concomitant]
     Active Substance: MEPROBAMATE
  15. MULTIVITAMIN (VITAMINS NOS) [Concomitant]
     Active Substance: VITAMINS
  16. BUPROPION (BUPROPION) [Concomitant]
     Active Substance: BUPROPION
  17. GUAIFENESIN (GUAIFENESIN) [Concomitant]
  18. CELEXA [Concomitant]
     Active Substance: CITALOPRAM HYDROBROMIDE

REACTIONS (1)
  - Pancreatitis [None]

NARRATIVE: CASE EVENT DATE: 20140414
